FAERS Safety Report 12361738 (Version 2)
Quarter: 2016Q3

REPORT INFORMATION
  Report Type: Spontaneous
  Country: US (occurrence: US)
  Receive Date: 20160512
  Receipt Date: 20160809
  Transmission Date: 20161109
  Serious: No
  Sender: FDA-Public Use
  Company Number: US-SA-2016SA080026

PATIENT
  Age: 73 Year
  Sex: Female

DRUGS (13)
  1. ECOTRIN [Concomitant]
     Active Substance: ASPIRIN
     Indication: CORONARY ARTERY DISEASE
     Route: 065
  2. TENORMIN [Concomitant]
     Active Substance: ATENOLOL
     Indication: HYPERTENSION
  3. METAMUCIL [Concomitant]
     Active Substance: PLANTAGO SEED
  4. CRANBERRY EXTRACT [Concomitant]
     Active Substance: CRANBERRY JUICE
  5. NORVASC [Concomitant]
     Active Substance: AMLODIPINE BESYLATE
     Indication: HYPERTENSION
     Route: 065
  6. ZETIA [Concomitant]
     Active Substance: EZETIMIBE
     Indication: HYPERLIPIDAEMIA
     Route: 065
  7. ALIROCUMAB PREFILLED PEN [Concomitant]
     Active Substance: ALIROCUMAB
  8. NITROSTAT [Concomitant]
     Active Substance: NITROGLYCERIN
     Indication: HYPERLIPIDAEMIA
  9. NITROSTAT [Concomitant]
     Active Substance: NITROGLYCERIN
     Indication: CHEST PAIN
  10. TENORMIN [Concomitant]
     Active Substance: ATENOLOL
     Indication: CORONARY ARTERY DISEASE
  11. PRALUENT [Suspect]
     Active Substance: ALIROCUMAB
     Indication: HYPERLIPIDAEMIA
     Route: 058
     Dates: start: 201511
  12. ANAPROX [Concomitant]
     Active Substance: NAPROXEN SODIUM
     Route: 065
  13. TYLENOL [Concomitant]
     Active Substance: ACETAMINOPHEN

REACTIONS (2)
  - Pruritus [Recovered/Resolved]
  - Injection site rash [Recovered/Resolved]

NARRATIVE: CASE EVENT DATE: 201603
